FAERS Safety Report 16526722 (Version 1)
Quarter: 2019Q3

REPORT INFORMATION
  Report Type: Report from Study
  Country: GT (occurrence: GT)
  Receive Date: 20190704
  Receipt Date: 20190704
  Transmission Date: 20191004
  Serious: Yes (Other)
  Sender: FDA-Public Use
  Company Number: PHHY2019GT154095

PATIENT
  Age: 51 Year
  Sex: Female

DRUGS (1)
  1. EXFORGE [Suspect]
     Active Substance: AMLODIPINE BESYLATE\VALSARTAN
     Indication: HYPERTENSION
     Dosage: (AMLODIPINE 5 MG VALSARTAN 160 MG) UNK
     Route: 065
     Dates: start: 201904

REACTIONS (2)
  - Malaise [Unknown]
  - Cerebrovascular accident [Unknown]
